FAERS Safety Report 16287199 (Version 7)
Quarter: 2019Q3

REPORT INFORMATION
  Report Type: Report from Study
  Country: None (occurrence: JP)
  Receive Date: 20190508
  Receipt Date: 20190830
  Transmission Date: 20191004
  Serious: Yes (Hospitalization)
  Sender: FDA-Public Use
  Company Number: JP-ABBVIE-17K-087-2010349-00

PATIENT
  Age: 78 Year
  Sex: Male
  Weight: 45 kg

DRUGS (9)
  1. DUODOPA [Suspect]
     Active Substance: CARBIDOPA\LEVODOPA
     Indication: PARKINSON^S DISEASE
     Dosage: MD: 8 ML, CD: 2.1 ML/HR X 16 HR
     Route: 050
     Dates: start: 20170515, end: 20180105
  2. DUODOPA [Suspect]
     Active Substance: CARBIDOPA\LEVODOPA
     Dosage: CD 2.1 ML/HRS ? 16 HOURS MD 8 ML
     Route: 050
     Dates: start: 20180115, end: 20180407
  3. DUODOPA [Suspect]
     Active Substance: CARBIDOPA\LEVODOPA
     Dosage: MD: 8 ML?CD: 2.3 ML/HR ? 16 HRS
     Route: 050
     Dates: start: 20180510, end: 20190607
  4. LANSOPRAZOLE. [Concomitant]
     Active Substance: LANSOPRAZOLE
     Indication: PROPHYLAXIS AGAINST GASTROINTESTINAL ULCER
     Route: 048
     Dates: start: 20170522
  5. CARBIDOPA HYDRATE-LEVODOPA MIXTURE [Concomitant]
     Route: 048
     Dates: start: 20180407, end: 20180413
  6. DUODOPA [Suspect]
     Active Substance: CARBIDOPA\LEVODOPA
     Dosage: MD 8 ML?CD 2.1 ML/HRS ? 16 HOURS
     Route: 050
     Dates: start: 20180413, end: 20180510
  7. DUODOPA [Suspect]
     Active Substance: CARBIDOPA\LEVODOPA
     Route: 050
     Dates: start: 2019, end: 20190705
  8. CARBIDOPA HYDRATE-LEVODOPA MIXTURE [Concomitant]
     Indication: PARKINSON^S DISEASE
     Route: 048
     Dates: start: 20180105, end: 20180115
  9. AMANTADINE HYDROCHLORIDE. [Concomitant]
     Active Substance: AMANTADINE HYDROCHLORIDE
     Indication: PARKINSON^S DISEASE
     Route: 048
     Dates: start: 20170523

REACTIONS (6)
  - Pyrexia [Recovering/Resolving]
  - Decreased appetite [Recovered/Resolved]
  - Feeding disorder [Unknown]
  - Pneumonia [Recovered/Resolved]
  - Obstruction [Recovered/Resolved]
  - Weight decreased [Recovering/Resolving]

NARRATIVE: CASE EVENT DATE: 2017
